FAERS Safety Report 17926272 (Version 1)
Quarter: 2020Q2

REPORT INFORMATION
  Report Type: Spontaneous
  Country: PL (occurrence: PL)
  Receive Date: 20200623
  Receipt Date: 20200623
  Transmission Date: 20200714
  Serious: Yes (Other)
  Sender: FDA-Public Use
  Company Number: PL-INCYTE CORPORATION-2020IN005814

PATIENT

DRUGS (3)
  1. JAKAVI [Suspect]
     Active Substance: RUXOLITINIB
     Indication: PRIMARY MYELOFIBROSIS
     Dosage: 40, INITIAL DOSE
     Route: 065
     Dates: start: 20200121
  2. JAKAVI [Suspect]
     Active Substance: RUXOLITINIB
     Dosage: 10, AFTER 1-2 MONTHS
     Route: 065
  3. JAKAVI [Suspect]
     Active Substance: RUXOLITINIB
     Dosage: 10, AFTER 3 MONTHS
     Route: 065
     Dates: end: 20200420

REACTIONS (3)
  - Alanine aminotransferase increased [Unknown]
  - Hepatotoxicity [Unknown]
  - Aspartate aminotransferase increased [Unknown]
